FAERS Safety Report 9731588 (Version 2)
Quarter: 2013Q4

REPORT INFORMATION
  Report Type: Spontaneous
  Country: DK (occurrence: DK)
  Receive Date: 20131203
  Receipt Date: 20131223
  Transmission Date: 20140711
  Serious: Yes (Other)
  Sender: FDA-Public Use
  Company Number: DK-MYLANLABS-2013S1026427

PATIENT
  Age: 45 Year
  Sex: Female
  Weight: 75 kg

DRUGS (2)
  1. BACLOFEN [Suspect]
     Indication: MUSCLE SPASMS
     Dates: start: 20111116, end: 20130504
  2. NORITREN [Concomitant]
     Indication: ARTHRALGIA
     Dates: start: 20111103, end: 20130501

REACTIONS (1)
  - Abdominal distension [Recovering/Resolving]
